FAERS Safety Report 19665744 (Version 2)
Quarter: 2021Q3

REPORT INFORMATION
  Report Type: Spontaneous
  Country: SE (occurrence: SE)
  Receive Date: 20210806
  Receipt Date: 20210830
  Transmission Date: 20211014
  Serious: Yes (Life-Threatening, Hospitalization, Other)
  Sender: FDA-Public Use
  Company Number: SE-LUPIN PHARMACEUTICALS INC.-2021-13728

PATIENT
  Sex: Male
  Weight: 2.9 kg

DRUGS (11)
  1. NORMOSANG [Suspect]
     Active Substance: HEME
     Dosage: 28 MILLILITER, (700MG) GESTATION WEEK 30
     Route: 064
  2. KETOBEMIDONE [Suspect]
     Active Substance: KETOBEMIDONE
     Indication: PAIN
     Dosage: UNK
     Route: 064
  3. NORMOSANG [Suspect]
     Active Substance: HEME
     Dosage: 60 MILLILITER, GESTATION WEEK 32?39 (1500MG)
     Route: 064
  4. GLUCOSE [Suspect]
     Active Substance: DEXTROSE
     Indication: PORPHYRIA ACUTE
     Dosage: 10 MILLIGRAM, BID, GESTATIONAL WEEK 6 AND 7
     Route: 064
  5. OXYCODONE [Suspect]
     Active Substance: OXYCODONE
     Indication: PAIN
     Dosage: 10 MILLIGRAM, BID (OXYCONTIN)
     Route: 064
  6. NORMOSANG [Suspect]
     Active Substance: HEME
     Dosage: 28 MILLILITER, GESTATION WEEK 25 (700 MG)
     Route: 064
  7. KETOBEMIDONE [Suspect]
     Active Substance: KETOBEMIDONE
     Dosage: 5 MILLIGRAM, 2?3 DAILY
     Route: 064
  8. NORMOSANG [Suspect]
     Active Substance: HEME
     Indication: PORPHYRIA ACUTE
     Dosage: 21 MILLILITER (525MG), GESTATION WEEK 3
     Route: 064
  9. KETOBEMIDONE [Suspect]
     Active Substance: KETOBEMIDONE
     Dosage: UNK UNK, QD, 30?35 MILLIGRAM
     Route: 064
  10. KETOBEMIDONE [Suspect]
     Active Substance: KETOBEMIDONE
     Dosage: UNK UNK, QD, 20?30 MILLIGRAM
     Route: 064
  11. NORMOSANG [Suspect]
     Active Substance: HEME
     Dosage: 28 MILLILITER, (700MG) GESTATION WEEK 7
     Route: 064

REACTIONS (2)
  - Foetal exposure during pregnancy [Unknown]
  - Drug withdrawal syndrome [Recovered/Resolved]
